FAERS Safety Report 18099450 (Version 1)
Quarter: 2020Q3

REPORT INFORMATION
  Report Type: Spontaneous
  Country: US (occurrence: US)
  Receive Date: 20200731
  Receipt Date: 20200731
  Transmission Date: 20201103
  Serious: Yes (Disabling, Other)
  Sender: FDA-Public Use
  Company Number: US-PURDUE-USA-2020-0159305

PATIENT
  Sex: Male

DRUGS (2)
  1. OXYCODONE HYDROCHLORIDE (SIMILAR TO NDA 22?272) [Suspect]
     Active Substance: OXYCODONE HYDROCHLORIDE
     Indication: PROCEDURAL PAIN
     Dosage: UNK
     Route: 065
     Dates: start: 201804
  2. HEROIN [Suspect]
     Active Substance: DIAMORPHINE
     Indication: PRODUCT USED FOR UNKNOWN INDICATION
     Route: 065

REACTIONS (19)
  - Mental disorder [Unknown]
  - Post-traumatic stress disorder [Unknown]
  - Loss of consciousness [Unknown]
  - Thought blocking [Unknown]
  - Overdose [Unknown]
  - Bipolar disorder [Unknown]
  - Withdrawal syndrome [Unknown]
  - Obsessive-compulsive disorder [Unknown]
  - Dependence [Unknown]
  - Imprisonment [None]
  - Anxiety [Unknown]
  - Stress [Unknown]
  - Amnesia [Unknown]
  - Attention deficit hyperactivity disorder [Unknown]
  - Paranoia [Unknown]
  - Drug abuse [Unknown]
  - Depression [Unknown]
  - Panic attack [Unknown]
  - Pain [Unknown]

NARRATIVE: CASE EVENT DATE: 2018
